FAERS Safety Report 9691280 (Version 1)
Quarter: 2013Q4

REPORT INFORMATION
  Report Type: Spontaneous
  Country: ES (occurrence: ES)
  Receive Date: 20131115
  Receipt Date: 20131115
  Transmission Date: 20140711
  Serious: Yes (Hospitalization, Other)
  Sender: FDA-Public Use
  Company Number: ES-B.I. PHARMACEUTICALS,INC./RIDGEFIELD-2013-BI-37507BY

PATIENT
  Age: 90 Year
  Sex: Female

DRUGS (1)
  1. PRITORPLUS [Suspect]
     Indication: HYPERTENSION
     Dosage: 1 ANZ
     Route: 048
     Dates: start: 2013, end: 20130926

REACTIONS (2)
  - Hyponatraemia [Recovered/Resolved]
  - Presyncope [Recovered/Resolved]
